FAERS Safety Report 17443946 (Version 1)
Quarter: 2020Q1

REPORT INFORMATION
  Report Type: Spontaneous
  Country: US (occurrence: US)
  Receive Date: 20200221
  Receipt Date: 20200221
  Transmission Date: 20200409
  Serious: No
  Sender: FDA-Public Use
  Company Number: US-BRISTOL-MYERS SQUIBB COMPANY-BMS-2020-014859

PATIENT
  Age: 55 Year
  Sex: Female

DRUGS (1)
  1. SPRYCEL [Suspect]
     Active Substance: DASATINIB
     Indication: CHRONIC MYELOID LEUKAEMIA
     Dosage: 100 MILLIGRAM, DAILY
     Route: 048
     Dates: start: 20191022

REACTIONS (4)
  - Photophobia [Unknown]
  - Cough [Unknown]
  - Nasopharyngitis [Unknown]
  - Body temperature increased [Unknown]

NARRATIVE: CASE EVENT DATE: 20200218
